FAERS Safety Report 8976786 (Version 3)
Quarter: 2013Q1

REPORT INFORMATION
  Report Type: Spontaneous
  Country: CA (occurrence: CA)
  Receive Date: 20121220
  Receipt Date: 20130326
  Transmission Date: 20140127
  Serious: Yes (Hospitalization, Other)
  Sender: FDA-Public Use
  Company Number: CA-ELI_LILLY_AND_COMPANY-CA201212004688

PATIENT
  Age: 60 Year
  Sex: Male

DRUGS (16)
  1. FORTEO [Suspect]
     Indication: OSTEOPOROSIS
     Dosage: 20MCG, DAILY
     Route: 058
     Dates: start: 20110629, end: 20121206
  2. FORTEO [Suspect]
     Dosage: 20 UG, QD
     Route: 058
     Dates: start: 20121210
  3. PANTOLOC                           /01263204/ [Concomitant]
     Dosage: 40 MG, QD
  4. PREDNISONE [Concomitant]
     Dosage: 5 MG, QD
  5. NORVASC [Concomitant]
     Dosage: 5 MG, QD
  6. GABAPENIN [Concomitant]
     Dosage: 300 MG, BID
  7. ELAVIL [Concomitant]
     Dosage: 10 MG, UNK
  8. FLOMAX [Concomitant]
  9. MAVIK [Concomitant]
     Dosage: 0.5 MG, 3/W
  10. KETO [Concomitant]
     Dosage: 100 MG, UNK
  11. ENTROPHEN [Concomitant]
  12. CIALIS [Concomitant]
  13. ACETAMINOPHEN [Concomitant]
  14. LIPITOR [Concomitant]
     Dosage: 10 MG, UNK
  15. CALCIUM [Concomitant]
     Dosage: 500 DF, BID
  16. CALCIA [Concomitant]
     Dosage: UNK, BID

REACTIONS (3)
  - Femur fracture [Recovered/Resolved]
  - Fall [Recovered/Resolved]
  - Coordination abnormal [Unknown]
